FAERS Safety Report 24903399 (Version 3)
Quarter: 2025Q4

REPORT INFORMATION
  Report Type: Report from Study
  Country: US (occurrence: US)
  Receive Date: 20250130
  Receipt Date: 20251016
  Transmission Date: 20260118
  Serious: No
  Sender: ASTELLAS
  Company Number: US-ASTELLAS-2025-AER-004441

PATIENT
  Sex: Male

DRUGS (7)
  1. IZERVAY [Suspect]
     Active Substance: AVACINCAPTAD PEGOL SODIUM
     Indication: Dry age-related macular degeneration
     Dosage: 0.1 ML OF 20MG/ML SOLUTION INJECTED INTRAVITREALLY Q 2 MO (OD) RIGHT EYE
     Dates: start: 20241002
  2. IZERVAY [Suspect]
     Active Substance: AVACINCAPTAD PEGOL SODIUM
  3. IZERVAY [Suspect]
     Active Substance: AVACINCAPTAD PEGOL SODIUM
  4. IZERVAY [Suspect]
     Active Substance: AVACINCAPTAD PEGOL SODIUM
  5. IZERVAY [Suspect]
     Active Substance: AVACINCAPTAD PEGOL SODIUM
  6. IZERVAY [Suspect]
     Active Substance: AVACINCAPTAD PEGOL SODIUM
  7. IZERVAY [Suspect]
     Active Substance: AVACINCAPTAD PEGOL SODIUM

REACTIONS (2)
  - Intercepted product preparation error [Unknown]
  - Syringe issue [Unknown]
